FAERS Safety Report 7116146-3 (Version None)
Quarter: 2010Q4

REPORT INFORMATION
  Report Type: 
  Country: None (occurrence: None)
  Receive Date: 20101122
  Receipt Date: 20101109
  Transmission Date: 20110411
  Serious: Yes (Hospitalization)
  Sender: FDA-Public Use
  Company Number: PHHY2010JP67380

PATIENT
  Age: 86 Year
  Sex: Female

DRUGS (2)
  1. ZOMETA [Suspect]
     Indication: METASTASES TO BONE
     Dosage: UNK
     Route: 041
     Dates: start: 20090501, end: 20091201
  2. IMIDAPRIL HYDROCHLORIDE [Suspect]
     Dosage: UNK
     Route: 048
     Dates: end: 20100101

REACTIONS (9)
  - BETA 2 MICROGLOBULIN URINE INCREASED [None]
  - BLOOD GLUCOSE INCREASED [None]
  - DECREASED APPETITE [None]
  - GLUCOSE URINE PRESENT [None]
  - HYPOPHOSPHATAEMIA [None]
  - METABOLIC ACIDOSIS [None]
  - RENAL FAILURE [None]
  - RENAL TUBULAR DISORDER [None]
  - VOMITING [None]
